FAERS Safety Report 9765392 (Version 1)
Quarter: 2013Q4

REPORT INFORMATION
  Report Type: Spontaneous
  Country: US (occurrence: US)
  Receive Date: 20131217
  Receipt Date: 20131217
  Transmission Date: 20140711
  Serious: No
  Sender: FDA-Public Use
  Company Number: US-GLAXOSMITHKLINE-A1006929A

PATIENT
  Age: 60 Year
  Sex: Male
  Weight: 71.8 kg

DRUGS (8)
  1. VOTRIENT [Suspect]
     Indication: PRODUCT USED FOR UNKNOWN INDICATION
     Dosage: 800MG PER DAY
     Route: 048
  2. GLUCOSAMINE + CHONDROITIN [Concomitant]
  3. HYDROCORT [Concomitant]
  4. SENNA CONCENTRATE + DOCUSATE SODIUM [Concomitant]
  5. DOCUSATE SODIUM [Concomitant]
  6. CLONAZEPAM [Concomitant]
  7. ALKA-SELTZER PLUS COLD [Concomitant]
  8. PROCHLORPERAZINE [Concomitant]

REACTIONS (2)
  - Nausea [Unknown]
  - Vomiting [Unknown]
